FAERS Safety Report 5128592-8 (Version None)
Quarter: 2006Q4

REPORT INFORMATION
  Report Type: 
  Country: None (occurrence: None)
  Receive Date: 20061017
  Receipt Date: 20061016
  Transmission Date: 20070319
  Serious: Yes (Hospitalization)
  Sender: FDA-Public Use
  Company Number: J200604319

PATIENT
  Age: 55 Year
  Sex: Male

DRUGS (2)
  1. SAWACILLIN [Suspect]
     Indication: OTITIS MEDIA ACUTE
     Route: 048
  2. KELNAC [Concomitant]
     Indication: DRUG USE FOR UNKNOWN INDICATION
     Route: 065

REACTIONS (1)
  - DIZZINESS [None]
